FAERS Safety Report 24253791 (Version 1)
Quarter: 2024Q3

REPORT INFORMATION
  Report Type: Spontaneous
  Country: JP (occurrence: None)
  Receive Date: 20240827
  Receipt Date: 20240827
  Transmission Date: 20241016
  Serious: Yes (Other)
  Sender: ASTRAZENECA
  Company Number: 2024A192164

PATIENT
  Sex: Female

DRUGS (2)
  1. FASLODEX [Suspect]
     Active Substance: FULVESTRANT
     Indication: Breast cancer
     Route: 030
  2. TRUQAP [Suspect]
     Active Substance: CAPIVASERTIB
     Indication: Breast cancer
     Dosage: ON A 4-DAYS-ON, 3-DAYS-OFF SCHEDULE
     Route: 048

REACTIONS (2)
  - Colitis ischaemic [Recovering/Resolving]
  - Vomiting [Recovering/Resolving]
